FAERS Safety Report 4408276-1 (Version None)
Quarter: 2004Q3

REPORT INFORMATION
  Report Type: 
  Country: None (occurrence: None)
  Receive Date: 20040722
  Receipt Date: 20040709
  Transmission Date: 20050211
  Serious: Yes (Death)
  Sender: FDA-Public Use
  Company Number: B0338717A

PATIENT
  Sex: 0

DRUGS (8)
  1. LEUKERAN [Suspect]
     Indication: HODGKIN'S DISEASE
     Dosage: ORAL
     Route: 048
  2. VINBLASTINE SULFATE [Suspect]
     Indication: HODGKIN'S DISEASE
     Dosage: INTRAVENOUS
     Route: 042
  3. PROCARBAZINE (PROCARBAZINE) [Suspect]
     Indication: HODGKIN'S DISEASE
     Dosage: ORAL
     Route: 048
  4. PREDNISONE [Suspect]
     Indication: HODGKIN'S DISEASE
     Dosage: ORAL
     Route: 048
  5. DOXORUBICIN (DOXORUBICIN) [Suspect]
     Indication: HODGKIN'S DISEASE
     Dosage: INTRAVENOUS
     Route: 042
  6. ETOPOSIDE [Suspect]
     Indication: HODGKIN'S DISEASE
     Dosage: INTRAVENOUS
     Route: 042
  7. VINCRISTINE [Suspect]
     Indication: HODGKIN'S DISEASE
     Dosage: INTRAVENOUS
     Route: 042
  8. BLEOMYCIN [Suspect]
     Indication: HODGKIN'S DISEASE
     Dosage: INTRAVENOUS
     Route: 042

REACTIONS (1)
  - NON-HODGKIN'S LYMPHOMA [None]
